FAERS Safety Report 7770150-0 (Version None)
Quarter: 2011Q3

REPORT INFORMATION
  Report Type: 
  Country: None (occurrence: None)
  Receive Date: 20110922
  Receipt Date: 20110222
  Transmission Date: 20111222
  Serious: No
  Sender: FDA-Public Use
  Company Number: US-ASTRAZENECA-2011SE10331

PATIENT
  Age: 61 Year
  Sex: Male

DRUGS (3)
  1. SYMBICORT [Concomitant]
  2. NEXIUM [Concomitant]
  3. SEROQUEL [Suspect]
     Route: 048

REACTIONS (3)
  - THINKING ABNORMAL [None]
  - DRUG DOSE OMISSION [None]
  - INSOMNIA [None]
